FAERS Safety Report 8225395-2 (Version None)
Quarter: 2012Q1

REPORT INFORMATION
  Report Type: 
  Country: None (occurrence: None)
  Receive Date: 20120307
  Receipt Date: 20110307
  Transmission Date: 20120608
  Serious: No
  Sender: FDA-Public Use
  Company Number: PHHY2011US19740

PATIENT
  Age: 23 Year
  Sex: Male

DRUGS (6)
  1. MIRALAX [Concomitant]
  2. AFINITOR [Suspect]
     Dosage: 10 MG, ORAL
     Route: 048
     Dates: start: 20110129
  3. RISPERDAL [Concomitant]
  4. LEXAPRO [Concomitant]
  5. DITROPAN [Concomitant]
  6. CARBATROL (CARBAZMAZEPINE) [Concomitant]

REACTIONS (1)
  - PAIN IN EXTREMITY [None]
